FAERS Safety Report 22326639 (Version 1)
Quarter: 2023Q2

REPORT INFORMATION
  Report Type: Spontaneous
  Country: US (occurrence: US)
  Receive Date: 20230516
  Receipt Date: 20230516
  Transmission Date: 20230721
  Serious: No
  Sender: FDA-Public Use
  Company Number: US-RADIUS HEALTH INC.-2022US003756

PATIENT
  Age: 64 Year
  Sex: Female

DRUGS (2)
  1. TYMLOS [Suspect]
     Active Substance: ABALOPARATIDE
     Indication: Senile osteoporosis
     Dosage: 80 MICROGRAM, QD
     Route: 058
     Dates: start: 20220713
  2. CALCIUM [Suspect]
     Active Substance: CALCIUM
     Indication: Product used for unknown indication

REACTIONS (16)
  - Illness [Unknown]
  - Anxiety [Unknown]
  - Hunger [Unknown]
  - Muscle spasms [Unknown]
  - Injection site swelling [Unknown]
  - Diarrhoea [Unknown]
  - Headache [Unknown]
  - Injection site erythema [Unknown]
  - Fatigue [Unknown]
  - Malaise [Unknown]
  - Injection site haemorrhage [Unknown]
  - Pain [Unknown]
  - Nausea [Unknown]
  - Injection site pain [Unknown]
  - Injection site bruising [Recovering/Resolving]
  - Product dose omission issue [Unknown]

NARRATIVE: CASE EVENT DATE: 20220918
